APPROVED DRUG PRODUCT: FLOLAN
Active Ingredient: EPOPROSTENOL SODIUM
Strength: EQ 0.5MG BASE/VIAL
Dosage Form/Route: INJECTABLE;INJECTION
Application: N020444 | Product #001
Applicant: GLAXOSMITHKLINE LLC
Approved: Sep 20, 1995 | RLD: Yes | RS: No | Type: DISCN